FAERS Safety Report 8879583 (Version 1)
Quarter: 2012Q4

REPORT INFORMATION
  Report Type: 
  Country: US (occurrence: US)
  Receive Date: 20121031
  Receipt Date: 20121031
  Transmission Date: 20130627
  Serious: No
  Sender: FDA-Public Use
  Company Number: US-BAYER-2012-113718

PATIENT
  Age: 75 Year
  Sex: Female

DRUGS (1)
  1. GADAVIST [Suspect]
     Dosage: 10 ml, UNK
     Dates: start: 20121029, end: 20121029

REACTIONS (7)
  - Feeling hot [None]
  - Nervousness [None]
  - Asthenia [None]
  - Generalised erythema [None]
  - Paraesthesia [None]
  - Vision blurred [None]
  - Ocular hyperaemia [None]
